FAERS Safety Report 10691407 (Version 1)
Quarter: 2015Q1

REPORT INFORMATION
  Report Type: Report from Study
  Country: US (occurrence: US)
  Receive Date: 20150105
  Receipt Date: 20150105
  Transmission Date: 20150720
  Serious: Yes (Other)
  Sender: FDA-Public Use
  Company Number: US-ASTRAZENECA-2014SE99358

PATIENT

DRUGS (2)
  1. ZD6474 [Suspect]
     Active Substance: VANDETANIB
     Indication: GLIOBLASTOMA
     Route: 048
  2. SIROLIMUS. [Suspect]
     Active Substance: SIROLIMUS
     Indication: GLIOBLASTOMA
     Route: 048

REACTIONS (1)
  - Blood phosphorus decreased [Unknown]
